FAERS Safety Report 6624733-1 (Version None)
Quarter: 2010Q1

REPORT INFORMATION
  Report Type: 
  Country: None (occurrence: None)
  Receive Date: 20100305
  Receipt Date: 20100219
  Transmission Date: 20100710
  Serious: Yes (Hospitalization)
  Sender: FDA-Public Use
  Company Number: IT-2010-0356

PATIENT
  Sex: Female

DRUGS (6)
  1. NAVELBINE [Suspect]
     Indication: BREAST CANCER
     Dosage: 38.29 MG IV
     Route: 042
     Dates: start: 20091124, end: 20091215
  2. FLUOROURACIL [Suspect]
     Indication: BREAST CANCER
     Dosage: 3864 MG
     Dates: start: 20091124, end: 20091215
  3. DELTACORTENE [Concomitant]
  4. ARTHROTEC [Concomitant]
  5. OXYCONTIN [Concomitant]
  6. LYRICA [Concomitant]

REACTIONS (4)
  - CHROMATURIA [None]
  - DIVERTICULITIS [None]
  - ENTEROVESICAL FISTULA [None]
  - URINE ODOUR ABNORMAL [None]
